FAERS Safety Report 14495020 (Version 2)
Quarter: 2018Q1

REPORT INFORMATION
  Report Type: Spontaneous
  Country: US (occurrence: US)
  Receive Date: 20180206
  Receipt Date: 20180301
  Transmission Date: 20180509
  Serious: Yes (Other)
  Sender: FDA-Public Use
  Company Number: US-009507513-1802USA000961

PATIENT
  Age: 62 Year
  Sex: Female

DRUGS (29)
  1. CRANBERRY. [Concomitant]
     Active Substance: CRANBERRY
     Dosage: 1 CAPSULE ORAL EVERY DAY
     Route: 048
  2. LOMOTIL (ATROPINE SULFATE (+) DIPHENOXYLATE HYDROCHLORIDE) [Concomitant]
     Dosage: 2 TABLET ORAL FOUR TIMES A DAY
     Route: 048
     Dates: start: 20170726
  3. PYRIDIUM [Concomitant]
     Active Substance: PHENAZOPYRIDINE
     Dosage: 1 TABLET ORAL THREE TIMES A DAY
     Route: 048
     Dates: start: 20170626
  4. FLEXERIL [Concomitant]
     Active Substance: CYCLOBENZAPRINE HYDROCHLORIDE
     Dosage: 1 TABLET ORAL THREE TIMES A DAY
     Route: 048
     Dates: start: 20170213
  5. LORAZEPAM. [Concomitant]
     Active Substance: LORAZEPAM
     Indication: ANXIETY
  6. KEYTRUDA [Suspect]
     Active Substance: PEMBROLIZUMAB
     Indication: NON-SMALL CELL LUNG CANCER STAGE IV
     Dosage: 150 MG, Q3W (EVERY 3 WEEKS)
     Route: 042
     Dates: start: 20160513, end: 20171227
  7. CHERATUSSIN AC [Concomitant]
     Active Substance: CODEINE PHOSPHATE\GUAIFENESIN
     Indication: COUGH
     Dosage: 10 ML ORAL Q 6 HOUR PRN COUGH
     Route: 048
     Dates: start: 20160126
  8. COMPAZINE (PROCHLORPERAZINE MALEATE) [Concomitant]
     Indication: NAUSEA
     Dosage: 1 TABLET ORAL EVERY 6 HOURS PRN NAUSEA
     Route: 048
     Dates: start: 20160120
  9. TESSALON [Concomitant]
     Active Substance: BENZONATATE
     Dosage: 1 CAPSULE ORAL THREE TIMES A DAY
     Route: 048
     Dates: start: 20171221
  10. PREDNISONE. [Concomitant]
     Active Substance: PREDNISONE
     Dosage: 1 TABLET ORAL DAILY
     Route: 048
     Dates: start: 20171227
  11. DILAUDID [Concomitant]
     Active Substance: HYDROMORPHONE HYDROCHLORIDE
     Dosage: 1 TABLET ORAL THREE TIMES A DAY
     Route: 048
     Dates: start: 20171025
  12. HIBICLENS [Concomitant]
     Active Substance: CHLORHEXIDINE GLUCONATE
     Dosage: 1 APPLICATION TOPICAL ONCE DAILY
     Route: 061
     Dates: start: 20151016
  13. NORVASC [Suspect]
     Active Substance: AMLODIPINE BESYLATE
     Dosage: 1 TABLET ORAL DAILY
     Route: 048
  14. IPRATROPIUM BROMIDE. [Concomitant]
     Active Substance: IPRATROPIUM BROMIDE
     Dosage: 1 AMPOULE INHALATION FOUR TIMES A DAY
     Route: 055
     Dates: start: 20160909
  15. PERCOCET [Concomitant]
     Active Substance: ACETAMINOPHEN\OXYCODONE HYDROCHLORIDE
     Dosage: 1-2 TABLET ORAL EVERY 4 HOURS
     Route: 048
     Dates: start: 20171206
  16. FLOVENT HFA [Concomitant]
     Active Substance: FLUTICASONE PROPIONATE
     Dosage: 2 PUFF(S) INHALATION TWICE A DAY
     Route: 055
     Dates: start: 20171004
  17. XANAX [Concomitant]
     Active Substance: ALPRAZOLAM
     Dosage: 1 TABLET ORAL FOUR TIMES A DAY
     Route: 048
     Dates: start: 20170524
  18. CEFADROXIL. [Concomitant]
     Active Substance: CEFADROXIL
     Dosage: 1 CAPSULE ORAL TWICE A DAY
     Route: 048
     Dates: start: 20170120
  19. HYDROMET (HOMATROPINE METHYLBROMIDE (+) HYDROCODONE BITARTRATE) [Concomitant]
     Dosage: 5 ML ORAL Q4-6 HR PRN
     Route: 048
     Dates: start: 20160708
  20. PHENERGAN [Concomitant]
     Active Substance: PROMETHAZINE HYDROCHLORIDE
     Dosage: 1 TABLET ORAL AS NEEDED
     Route: 048
  21. MACRODANTIN [Concomitant]
     Active Substance: NITROFURANTOIN
     Dosage: 1 CAPSULE ORAL EVERY OTHER DAY
     Route: 048
     Dates: start: 20170705
  22. SCOPOLAMINE [Concomitant]
     Active Substance: SCOPOLAMINE
     Dosage: 1 PATCH TRANSDERMAL Q72 HOURS
     Route: 062
  23. MARINOL [Concomitant]
     Active Substance: DRONABINOL
     Dosage: 1 CAPSULE ORAL AS NEEDED
     Route: 048
  24. PROVENTIL [Concomitant]
     Active Substance: ALBUTEROL
     Indication: DYSPNOEA
     Dosage: 2 PUFF(S) INHALATION EVERY 4 TO 6 HOURS AS NEEDED FOR SHORTNESS OF AIR
     Route: 055
     Dates: start: 20170831
  25. MEDROL [Concomitant]
     Active Substance: METHYLPREDNISOLONE
     Dosage: 1 TABLET ORAL DAILY
     Route: 048
     Dates: start: 20170728
  26. ZOFRAN [Concomitant]
     Active Substance: ONDANSETRON HYDROCHLORIDE
     Indication: NAUSEA
     Dosage: 1 TABLET ORAL THREE TIMES A DAY TIMES A DAY AS NEEDED FOR NAUSEA
     Route: 048
     Dates: start: 20161109
  27. LACTOBACILLUS RHAMNOSUS [Concomitant]
     Active Substance: LACTOBACILLUS RHAMNOSUS
     Dosage: 2 TABLET ORAL EVERY DAY
     Route: 048
  28. ERGOCALCIFEROL. [Concomitant]
     Active Substance: ERGOCALCIFEROL
     Dosage: 1 CAPSULE ORAL WEEKLY
     Route: 048
     Dates: start: 20170208
  29. LORAZEPAM. [Concomitant]
     Active Substance: LORAZEPAM
     Indication: NAUSEA
     Dosage: 0.5-1 TABLET ORAL EVERY 6 TO 8 HOURS AS NEEDED
     Route: 048
     Dates: start: 20160120

REACTIONS (12)
  - Monocyte count abnormal [Unknown]
  - Blood creatinine abnormal [Unknown]
  - Mean cell volume abnormal [Unknown]
  - Bacterial test positive [Unknown]
  - Fungal skin infection [Unknown]
  - Urine leukocyte esterase positive [Unknown]
  - Blood test abnormal [Unknown]
  - Blood urea abnormal [Unknown]
  - Red cell distribution width abnormal [Unknown]
  - Candida pneumonia [Recovering/Resolving]
  - Swelling [Unknown]
  - Drug prescribing error [Unknown]

NARRATIVE: CASE EVENT DATE: 201605
